FAERS Safety Report 13888686 (Version 1)
Quarter: 2017Q3

REPORT INFORMATION
  Report Type: Spontaneous
  Country: US (occurrence: None)
  Receive Date: 20170816
  Receipt Date: 20170816
  Transmission Date: 20171127
  Serious: Yes (Death, Life-Threatening)
  Sender: FDA-Public Use
  Company Number: None

PATIENT
  Age: 42 Year
  Sex: Male

DRUGS (4)
  1. ATAZANAVIR [Concomitant]
     Active Substance: ATAZANAVIR
  2. PACLITAXEL. [Suspect]
     Active Substance: PACLITAXEL
     Indication: KAPOSI^S SARCOMA
     Dosage: 211 MG CYCLIC 21 DAY, IV
     Route: 042
     Dates: start: 20170601, end: 20170712
  3. RITONAVIR. [Concomitant]
     Active Substance: RITONAVIR
  4. EMTRICITABINE/TENOFOVIR DISOPROXIL FUMARATE [Suspect]
     Active Substance: EMTRICITABINE\TENOFOVIR DISOPROXIL FUMARATE
     Indication: HIV INFECTION
     Route: 048
     Dates: start: 20161129, end: 20170718

REACTIONS (6)
  - Red blood cell count decreased [None]
  - Febrile neutropenia [None]
  - Marrow hyperplasia [None]
  - Platelet count decreased [None]
  - Haematocrit decreased [None]
  - Haemoglobin decreased [None]

NARRATIVE: CASE EVENT DATE: 20170719
